FAERS Safety Report 10561961 (Version 2)
Quarter: 2014Q4

REPORT INFORMATION
  Report Type: Spontaneous
  Country: US (occurrence: US)
  Receive Date: 20141104
  Receipt Date: 20141113
  Transmission Date: 20150529
  Serious: Yes (Death)
  Sender: FDA-Public Use
  Company Number: US-AMGEN-USASP2014084624

PATIENT
  Age: 93 Year
  Sex: Female
  Weight: 43.54 kg

DRUGS (6)
  1. PROLIA [Suspect]
     Active Substance: DENOSUMAB
     Indication: OSTEOPOROSIS POSTMENOPAUSAL
     Dosage: 60 ABSENT, Q6MO
     Route: 058
     Dates: start: 20140630
  2. TRAMADOL [Concomitant]
     Active Substance: TRAMADOL
     Indication: PAIN
     Dosage: 80 MG, UNK, 4XDAY
     Route: 048
     Dates: start: 20121107, end: 20131008
  3. FLECTOR [Concomitant]
     Active Substance: DICLOFENAC EPOLAMINE
     Indication: PAIN
     Dosage: 139 ABSENT, BID
     Route: 062
     Dates: start: 20140723
  4. TRIAMCINOLONE                      /00031902/ [Concomitant]
     Indication: ROSACEA
     Dosage: .1 %, UNK, 3XDAY
     Route: 061
     Dates: start: 20140804
  5. ISORDIL [Concomitant]
     Active Substance: ISOSORBIDE DINITRATE
     Indication: HYPERTENSION
     Dosage: 10 MG, UNK, 3XDAY
     Route: 048
     Dates: start: 20140723
  6. LASIX [Concomitant]
     Active Substance: FUROSEMIDE
     Indication: HYPERTENSION
     Dosage: 40 ABSENT, BID
     Route: 048
     Dates: start: 20140710

REACTIONS (1)
  - Death [Fatal]

NARRATIVE: CASE EVENT DATE: 201408
